FAERS Safety Report 4596077-3 (Version None)
Quarter: 2005Q1

REPORT INFORMATION
  Report Type: 
  Country: None (occurrence: None)
  Receive Date: 20050225
  Receipt Date: 20050210
  Transmission Date: 20050727
  Serious: Yes (Other)
  Sender: FDA-Public Use
  Company Number: SP00379

PATIENT
  Sex: Male

DRUGS (1)
  1. COLAZIDE [Suspect]
     Dosage: ORAL
     Route: 048
     Dates: start: 20040201

REACTIONS (3)
  - CELLULITIS [None]
  - LEUKOCYTOCLASTIC VASCULITIS [None]
  - RASH [None]
